FAERS Safety Report 7010419-0 (Version None)
Quarter: 2010Q3

REPORT INFORMATION
  Report Type: 
  Country: None (occurrence: None)
  Receive Date: 20100923
  Receipt Date: 20100824
  Transmission Date: 20110219
  Serious: No
  Sender: FDA-Public Use
  Company Number: US-BAUSCH-2010BL004839

PATIENT

DRUGS (4)
  1. BESIVANCE [Suspect]
     Indication: POSTOPERATIVE CARE
     Route: 047
     Dates: start: 20100701
  2. BESIVANCE [Suspect]
     Indication: OFF LABEL USE
     Route: 047
     Dates: start: 20100701
  3. LOTEMAX [Suspect]
     Indication: POSTOPERATIVE CARE
     Route: 047
     Dates: start: 20100701
  4. ACUVAIL [Suspect]
     Indication: POSTOPERATIVE CARE
     Route: 047
     Dates: start: 20100701

REACTIONS (2)
  - DRUG TOXICITY [None]
  - IMPAIRED HEALING [None]
